FAERS Safety Report 9503173 (Version 1)
Quarter: 2013Q3

REPORT INFORMATION
  Report Type: Spontaneous
  Country: US (occurrence: US)
  Receive Date: 20130906
  Receipt Date: 20130906
  Transmission Date: 20140515
  Serious: No
  Sender: FDA-Public Use
  Company Number: US-PFIZER INC-2013254926

PATIENT
  Age: 65 Year
  Sex: Female
  Weight: 56.69 kg

DRUGS (4)
  1. CELEBREX [Suspect]
     Indication: ARTHRITIS
     Dosage: 200 MG, 2X/DAY
     Route: 048
     Dates: end: 201308
  2. LYRICA [Concomitant]
     Dosage: UNK
  3. KOMBIGLYZE XR [Concomitant]
     Dosage: 5/500 MG, UNK
  4. LISINOPRIL [Concomitant]
     Indication: HYPERTENSION
     Dosage: 40 MG, UNK

REACTIONS (1)
  - Drug ineffective [Unknown]
